FAERS Safety Report 4816754-6 (Version None)
Quarter: 2005Q4

REPORT INFORMATION
  Report Type: 
  Country: None (occurrence: None)
  Receive Date: 20051101
  Receipt Date: 20050426
  Transmission Date: 20060501
  Serious: No
  Sender: FDA-Public Use
  Company Number: US-GLAXOSMITHKLINE-A0555830A

PATIENT
  Age: 2 Year
  Sex: Female

DRUGS (1)
  1. AMOXIL [Suspect]
     Indication: SINUSITIS
     Dosage: .75TSP TWICE PER DAY
     Route: 048

REACTIONS (2)
  - RASH ERYTHEMATOUS [None]
  - RASH MACULAR [None]
